FAERS Safety Report 9176188 (Version 1)
Quarter: 2013Q1

REPORT INFORMATION
  Report Type: Spontaneous
  Country: US (occurrence: US)
  Receive Date: 20130321
  Receipt Date: 20130321
  Transmission Date: 20140127
  Serious: No
  Sender: FDA-Public Use
  Company Number: US-009507513-1303USA007969

PATIENT
  Age: 21 Year
  Sex: Female
  Weight: 95.24 kg

DRUGS (1)
  1. IMPLANON [Suspect]
     Indication: CONTRACEPTION
     Dosage: UNK
     Dates: start: 20120330

REACTIONS (2)
  - Menorrhagia [Unknown]
  - Asthenia [Unknown]
